FAERS Safety Report 5008814-4 (Version None)
Quarter: 2006Q2

REPORT INFORMATION
  Report Type: 
  Country: None (occurrence: None)
  Receive Date: 20060523
  Receipt Date: 20031027
  Transmission Date: 20061013
  Serious: Yes (Death, Life-Threatening, Hospitalization, Other)
  Sender: FDA-Public Use
  Company Number: PHHO2003DE13566

PATIENT
  Age: 15 Year
  Sex: Female
  Weight: 31 kg

DRUGS (7)
  1. SIMULECT [Suspect]
     Indication: RENAL TRANSPLANT
     Dosage: 10 MG, (DAY 0)
     Route: 042
     Dates: start: 20031023, end: 20031023
  2. SIMULECT [Suspect]
     Dosage: 10 MG, (DAY 4)
     Route: 042
     Dates: start: 20031028, end: 20031028
  3. CELLCEPT [Suspect]
     Indication: RENAL TRANSPLANT
     Dosage: 620 MG, BID
     Route: 048
     Dates: start: 20031024, end: 20031027
  4. NEORAL [Suspect]
     Indication: RENAL TRANSPLANT
     Dosage: NOT REPORTED
     Dates: start: 20031023
  5. NEORAL [Suspect]
     Dosage: 120 MG / DAY
     Route: 042
     Dates: end: 20031103
  6. NEORAL [Suspect]
     Dosage: 260 MG, BID
     Route: 048
  7. URBASON [Suspect]
     Indication: RENAL TRANSPLANT
     Dosage: 250 MG, ONCE/SINGLE
     Route: 042
     Dates: start: 20031023, end: 20031104

REACTIONS (17)
  - ACUTE RESPIRATORY DISTRESS SYNDROME [None]
  - CARDIAC ARREST [None]
  - CATHETER RELATED INFECTION [None]
  - CHOLESTASIS [None]
  - CONVULSION [None]
  - HAEMATURIA [None]
  - HYPOTENSION [None]
  - HYPOVENTILATION [None]
  - ILEUS PARALYTIC [None]
  - NEUROTOXICITY [None]
  - NUCLEAR MAGNETIC RESONANCE IMAGING BRAIN ABNORMAL [None]
  - OLIGURIA [None]
  - PNEUMONIA [None]
  - PNEUMONIA ASPIRATION [None]
  - RENAL TUBULAR NECROSIS [None]
  - SEPTIC SHOCK [None]
  - VOMITING [None]
